FAERS Safety Report 25790767 (Version 2)
Quarter: 2025Q3

REPORT INFORMATION
  Report Type: Spontaneous
  Country: US (occurrence: US)
  Receive Date: 20250911
  Receipt Date: 20250918
  Transmission Date: 20251020
  Serious: No
  Sender: PFIZER
  Company Number: US-PFIZER INC-PV202500109708

PATIENT
  Age: 71 Year
  Sex: Female

DRUGS (2)
  1. IBRANCE [Suspect]
     Active Substance: PALBOCICLIB
  2. IBRANCE [Suspect]
     Active Substance: PALBOCICLIB

REACTIONS (3)
  - Fatigue [Unknown]
  - White blood cell count abnormal [Unknown]
  - Laboratory test abnormal [Unknown]
